FAERS Safety Report 10504830 (Version 1)
Quarter: 2014Q4

REPORT INFORMATION
  Report Type: Spontaneous
  Country: US (occurrence: US)
  Receive Date: 20141008
  Receipt Date: 20141008
  Transmission Date: 20150528
  Serious: Yes (Other)
  Sender: FDA-Public Use
  Company Number: US-IPSEN BIOPHARMACEUTICALS, INC.-2014-5144

PATIENT

DRUGS (1)
  1. RECOMBINANT INSULIN LIKE GROWTH FACTOR-1 [Suspect]
     Active Substance: MECASERMIN
     Indication: PRIMARY INSULIN LIKE GROWTH FACTOR-1 DEFICIENCY
     Route: 058

REACTIONS (16)
  - Middle ear effusion [Unknown]
  - Thymus enlargement [Unknown]
  - Myalgia [Unknown]
  - Hypoglycaemia [Unknown]
  - Nephrolithiasis [Unknown]
  - Deafness neurosensory [Unknown]
  - Snoring [Unknown]
  - Tonsillar hypertrophy [Unknown]
  - Sleep apnoea syndrome [Unknown]
  - Bone pain [Unknown]
  - Hypoglycaemic seizure [Unknown]
  - Intracranial pressure increased [Recovered/Resolved]
  - Arthralgia [Unknown]
  - Antibody test positive [Unknown]
  - Hypoacusis [Unknown]
  - Lipohypertrophy [Unknown]
